FAERS Safety Report 5545448-7 (Version None)
Quarter: 2007Q4

REPORT INFORMATION
  Report Type: 
  Country: None (occurrence: None)
  Receive Date: 20071211
  Receipt Date: 20071129
  Transmission Date: 20080405
  Serious: Yes (Death, Hospitalization)
  Sender: FDA-Public Use
  Company Number: IL-NOVOPROD-268794

PATIENT

DRUGS (2)
  1. NOVOSEVEN [Suspect]
     Indication: HAEMORRHAGE
     Dosage: 7.2 MG, UNK
     Route: 042
  2. BLOOD CELLS, PACKED HUMAN [Concomitant]

REACTIONS (2)
  - GASTRITIS HAEMORRHAGIC [None]
  - REFUSAL OF TREATMENT BY PATIENT [None]
